FAERS Safety Report 9028428 (Version 2)
Quarter: 2014Q2

REPORT INFORMATION
  Report Type: Report from Study
  Country: FR (occurrence: FR)
  Receive Date: 20130124
  Receipt Date: 20140616
  Transmission Date: 20141212
  Serious: Yes (Hospitalization)
  Sender: FDA-Public Use
  Company Number: FR-EISAI INC-E7389-03460-CLI-FR

PATIENT
  Age: 75 Year
  Sex: Male
  Weight: 64 kg

DRUGS (7)
  1. E7389 (BOLD) [Suspect]
     Indication: NON-SMALL CELL LUNG CANCER
     Route: 041
     Dates: start: 20120329, end: 20120622
  2. TOPALGIC [Concomitant]
  3. DAFALGAN [Concomitant]
  4. ACUPAN [Concomitant]
  5. VIARDEGIC [Concomitant]
  6. PLAVIX [Concomitant]
  7. COVERSYL [Concomitant]

REACTIONS (2)
  - Musculoskeletal chest pain [Recovered/Resolved]
  - Dyspnoea [Recovered/Resolved]
